FAERS Safety Report 4890768-2 (Version None)
Quarter: 2006Q1

REPORT INFORMATION
  Report Type: 
  Country: None (occurrence: None)
  Receive Date: 20060123
  Receipt Date: 20060106
  Transmission Date: 20060701
  Serious: Yes (Other)
  Sender: FDA-Public Use
  Company Number: 220877

PATIENT
  Age: 52 Year
  Sex: Female

DRUGS (4)
  1. AVASTIN [Suspect]
     Indication: COLORECTAL CANCER
  2. FLUOROURACIL [Suspect]
     Indication: COLORECTAL CANCER
  3. LEUCOVORIN CALCIUM [Suspect]
     Indication: COLORECTAL CANCER
  4. OXALIPATIN (OXALIPLATIN) [Suspect]
     Indication: COLORECTAL CANCER

REACTIONS (2)
  - HEPATOMEGALY [None]
  - REVERSIBLE POSTERIOR LEUKOENCEPHALOPATHY SYNDROME [None]
